FAERS Safety Report 9030922 (Version 2)
Quarter: 2013Q1

REPORT INFORMATION
  Report Type: Report from Study
  Country: GB (occurrence: GB)
  Receive Date: 20130123
  Receipt Date: 20130227
  Transmission Date: 20140127
  Serious: Yes (Hospitalization)
  Sender: FDA-Public Use
  Company Number: GB-ROCHE-1182265

PATIENT
  Age: 82 Year
  Sex: Female
  Weight: 84 kg

DRUGS (2)
  1. TOCILIZUMAB [Suspect]
     Indication: RHEUMATOID ARTHRITIS
     Dosage: LAST DOSE PRIOR TO SAE 09/OCT/2012
     Route: 065
     Dates: start: 20120621
  2. METHOTREXATE [Concomitant]

REACTIONS (1)
  - Venous haemorrhage [Unknown]
